FAERS Safety Report 5938204-9 (Version None)
Quarter: 2008Q4

REPORT INFORMATION
  Report Type: 
  Country: None (occurrence: None)
  Receive Date: 20081031
  Receipt Date: 20081021
  Transmission Date: 20090506
  Serious: Yes (Hospitalization)
  Sender: FDA-Public Use
  Company Number: FR-PFIZER INC-2008089061

PATIENT
  Age: 78 Year
  Sex: Female

DRUGS (6)
  1. LYRICA [Suspect]
     Indication: NEURALGIA
  2. TROSPIUM CHLORIDE [Concomitant]
  3. MONO-TILDIEM - SLOW RELEASE [Concomitant]
  4. HYZAAR [Concomitant]
  5. HYPERIUM [Concomitant]
  6. TRAMADOL HYDROCHLORIDE [Concomitant]

REACTIONS (1)
  - DERMATITIS BULLOUS [None]
